FAERS Safety Report 5290505-6 (Version None)
Quarter: 2007Q2

REPORT INFORMATION
  Report Type: 
  Country: None (occurrence: None)
  Receive Date: 20070409
  Receipt Date: 20070402
  Transmission Date: 20071010
  Serious: Yes (Other)
  Sender: FDA-Public Use
  Company Number: BE-BAYER-200712014GDS

PATIENT
  Age: 72 Year
  Sex: Male

DRUGS (3)
  1. CIPROFLOXACIN [Suspect]
     Indication: ENTEROBACTER INFECTION
     Route: 065
  2. BETA-LACTAM ANTIBIOTICS [Suspect]
     Indication: ENTEROBACTER INFECTION
     Route: 065
  3. ANTIBIOTIC [Concomitant]
     Indication: INFECTION PROPHYLAXIS
     Route: 065

REACTIONS (3)
  - ACTIVATED PARTIAL THROMBOPLASTIN TIME PROLONGED [None]
  - FACTOR V INHIBITION [None]
  - PROTHROMBIN TIME PROLONGED [None]
